FAERS Safety Report 4331082-3 (Version None)
Quarter: 2004Q1

REPORT INFORMATION
  Report Type: 
  Country: None (occurrence: None)
  Receive Date: 20040331
  Receipt Date: 20040322
  Transmission Date: 20041129
  Serious: Yes (Other)
  Sender: FDA-Public Use
  Company Number: 200314163BCC

PATIENT
  Age: 80 Year
  Sex: Female
  Weight: 58.514 kg

DRUGS (5)
  1. ASPIRIN [Suspect]
     Indication: MYOCARDIAL INFARCTION
     Dosage: 162 MG, QD, ORAL; 81 MG QD, ORAL
     Route: 048
     Dates: start: 19980110, end: 19990101
  2. ASPIRIN [Suspect]
     Indication: PROPHYLAXIS
     Dosage: 162 MG, QD, ORAL; 81 MG QD, ORAL
     Route: 048
     Dates: start: 19980110, end: 19990101
  3. ASPIRIN [Suspect]
     Indication: MYOCARDIAL INFARCTION
     Dosage: 162 MG, QD, ORAL; 81 MG QD, ORAL
     Route: 048
     Dates: end: 20030201
  4. ASPIRIN [Suspect]
     Indication: PROPHYLAXIS
     Dosage: 162 MG, QD, ORAL; 81 MG QD, ORAL
     Route: 048
     Dates: end: 20030201
  5. ATENOLOL [Concomitant]

REACTIONS (4)
  - DEAFNESS [None]
  - GASTROENTERITIS RADIATION [None]
  - RECTAL HAEMORRHAGE [None]
  - TINNITUS [None]
